FAERS Safety Report 6700618-7 (Version None)
Quarter: 2010Q2

REPORT INFORMATION
  Report Type: 
  Country: None (occurrence: None)
  Receive Date: 20100428
  Receipt Date: 20100420
  Transmission Date: 20101027
  Serious: Yes (Death)
  Sender: FDA-Public Use
  Company Number: US-AMGEN-QUU407384

PATIENT
  Sex: Female

DRUGS (3)
  1. NPLATE [Suspect]
     Indication: IDIOPATHIC THROMBOCYTOPENIC PURPURA
     Dates: start: 20090611, end: 20090716
  2. CORTICOSTEROIDS [Concomitant]
     Dates: start: 20090505
  3. IMMU-G [Concomitant]
     Dates: start: 20090512

REACTIONS (1)
  - SMALL INTESTINE CARCINOMA METASTATIC [None]
